FAERS Safety Report 8815481 (Version 1)
Quarter: 2012Q4

REPORT INFORMATION
  Report Type: 
  Country: US (occurrence: US)
  Receive Date: 20120928
  Receipt Date: 20120928
  Transmission Date: 20130627
  Serious: Yes (Death)
  Sender: FDA-Public Use
  Company Number: US-GLAXOSMITHKLINE-A0995339A

PATIENT
  Age: 54 Year
  Sex: Female

DRUGS (14)
  1. TYKERB [Suspect]
     Indication: BREAST CANCER
     Dosage: 1250MG Per day
     Route: 048
     Dates: start: 20120419
  2. OXYCONTIN [Concomitant]
  3. OXYCODONE [Concomitant]
  4. LEVEMIR [Concomitant]
  5. METFORMIN [Concomitant]
  6. GLYBURIDE [Concomitant]
  7. METOPROLOL [Concomitant]
  8. BENICAR [Concomitant]
  9. LASIX [Concomitant]
  10. KLOR CON [Concomitant]
  11. IRON [Concomitant]
  12. MULTIVITAMIN [Concomitant]
  13. TURMERIC [Concomitant]
  14. VITAMIN D [Concomitant]

REACTIONS (1)
  - Death [Fatal]
